FAERS Safety Report 5318484-3 (Version None)
Quarter: 2007Q2

REPORT INFORMATION
  Report Type: 
  Country: None (occurrence: None)
  Receive Date: 20070501
  Receipt Date: 20070417
  Transmission Date: 20071010
  Serious: Yes (Death)
  Sender: FDA-Public Use
  Company Number: 070419-0000415

PATIENT
  Age: 11 Day
  Sex: Male

DRUGS (5)
  1. INDOCIN [Suspect]
     Indication: PATENT DUCTUS ARTERIOSUS
     Dosage: 0.06 MG; TID; IV
     Route: 042
     Dates: start: 20060610, end: 20060611
  2. SOLU-CORTEF [Suspect]
     Indication: SHOCK
     Dosage: 2 MG; QD; IV
     Route: 042
     Dates: start: 20060602, end: 20060602
  3. SOLU-CORTEF [Suspect]
     Indication: SHOCK
     Dosage: 2 MG; QD; IV
     Route: 042
     Dates: start: 20060613, end: 20060613
  4. PITRESSIN [Suspect]
     Indication: SHOCK
     Dosage: 1.92 U; QD; IV
     Route: 042
     Dates: start: 20060608, end: 20060614
  5. AMPICLOX [Concomitant]

REACTIONS (17)
  - ARRHYTHMIA NEONATAL [None]
  - BLOOD PRESSURE DECREASED [None]
  - BRADYCARDIA NEONATAL [None]
  - CEREBRAL HAEMORRHAGE NEONATAL [None]
  - DISSEMINATED INTRAVASCULAR COAGULATION [None]
  - ELECTROCARDIOGRAM QRS COMPLEX PROLONGED [None]
  - HYPERKALAEMIA [None]
  - NECROTISING FASCIITIS [None]
  - NEONATAL CARDIAC FAILURE [None]
  - NEONATAL DISORDER [None]
  - NEONATAL INFECTION [None]
  - NEUTROPHIL COUNT DECREASED [None]
  - NO THERAPEUTIC RESPONSE [None]
  - PATENT DUCTUS ARTERIOSUS [None]
  - PLATELET COUNT DECREASED [None]
  - SHOCK [None]
  - STAPHYLOCOCCAL INFECTION [None]
